FAERS Safety Report 6419170-9 (Version None)
Quarter: 2009Q4

REPORT INFORMATION
  Report Type: 
  Country: None (occurrence: None)
  Receive Date: 20091029
  Receipt Date: 20091021
  Transmission Date: 20100525
  Serious: Yes (Other)
  Sender: FDA-Public Use
  Company Number: PHHY2009AT45866

PATIENT
  Sex: Male

DRUGS (3)
  1. STALEVO 100 [Suspect]
     Dosage: 50 MG, QD
  2. MARCUMAR [Concomitant]
  3. PROTON PUMP INHIBITORS [Concomitant]

REACTIONS (2)
  - COAGULATION TEST ABNORMAL [None]
  - GASTRIC HAEMORRHAGE [None]
